FAERS Safety Report 23315233 (Version 1)
Quarter: 2023Q4

REPORT INFORMATION
  Report Type: Spontaneous
  Country: US (occurrence: None)
  Receive Date: 20231219
  Receipt Date: 20231219
  Transmission Date: 20240109
  Serious: No
  Sender: FDA-Public Use
  Company Number: None

PATIENT
  Age: 55 Year
  Sex: Male

DRUGS (1)
  1. ELTA MD SKINCARE UV STICK BROAD SPECTRUM SPF50 [Suspect]
     Active Substance: ZINC OXIDE
     Indication: Dry skin prophylaxis
     Route: 061
     Dates: start: 20231204, end: 20231206

REACTIONS (2)
  - Application site erythema [None]
  - Urticaria [None]

NARRATIVE: CASE EVENT DATE: 20231206
